FAERS Safety Report 15725295 (Version 1)
Quarter: 2018Q4

REPORT INFORMATION
  Report Type: Spontaneous
  Country: DE (occurrence: DE)
  Receive Date: 20181215
  Receipt Date: 20181215
  Transmission Date: 20190205
  Serious: Yes (Life-Threatening, Other)
  Sender: FDA-Public Use
  Company Number: DE-B.I. PHARMACEUTICALS,INC./RIDGEFIELD-2018-BI-057244

PATIENT
  Age: 76 Year
  Sex: Female
  Weight: 60 kg

DRUGS (6)
  1. CANDESARTAN. [Concomitant]
     Active Substance: CANDESARTAN
     Indication: HYPERTENSION
     Dosage: DAILY DOSE: 5
     Route: 048
  2. ACTILYSE [Suspect]
     Active Substance: ALTEPLASE
     Indication: PRODUCT USED FOR UNKNOWN INDICATION
     Route: 065
  3. SPIRONOLACTON [Concomitant]
     Active Substance: SPIRONOLACTONE
     Indication: HYPERTENSION
     Route: 048
  4. BISOPROLOL [Concomitant]
     Active Substance: BISOPROLOL
     Indication: HYPERTENSION
     Route: 048
  5. PRAXBIND [Suspect]
     Active Substance: IDARUCIZUMAB
     Indication: ISCHAEMIC STROKE
     Route: 042
     Dates: start: 20181122, end: 20181122
  6. PRAXBIND [Suspect]
     Active Substance: IDARUCIZUMAB
     Indication: PROCOAGULANT THERAPY

REACTIONS (4)
  - Nausea [Recovered/Resolved]
  - Rash [Recovered/Resolved]
  - Aphasia [Recovered/Resolved]
  - Vomiting [Recovered/Resolved]

NARRATIVE: CASE EVENT DATE: 20181122
